FAERS Safety Report 12466879 (Version 1)
Quarter: 2016Q2

REPORT INFORMATION
  Report Type: Spontaneous
  Country: US (occurrence: None)
  Receive Date: 20160614
  Receipt Date: 20160614
  Transmission Date: 20160815
  Serious: No
  Sender: FDA-Public Use
  Company Number: None

PATIENT
  Sex: Male

DRUGS (1)
  1. WELLBUTRIN XL [Suspect]
     Active Substance: BUPROPION HYDROCHLORIDE

REACTIONS (8)
  - Tremor [None]
  - Medication error [None]
  - Hypertension [None]
  - Dyskinesia [None]
  - Drug withdrawal syndrome [None]
  - Incorrect dose administered [None]
  - Drug dispensing error [None]
  - Angina pectoris [None]

NARRATIVE: CASE EVENT DATE: 2016
